FAERS Safety Report 7320308-X (Version None)
Quarter: 2011Q1

REPORT INFORMATION
  Report Type: 
  Country: None (occurrence: None)
  Receive Date: 20110228
  Receipt Date: 20110225
  Transmission Date: 20110831
  Serious: Yes (Other)
  Sender: FDA-Public Use
  Company Number: A0914989A

PATIENT
  Sex: Female

DRUGS (1)
  1. ALLI [Suspect]
     Route: 048

REACTIONS (8)
  - CHOLELITHIASIS [None]
  - HAEMATOCHEZIA [None]
  - DEHYDRATION [None]
  - FREQUENT BOWEL MOVEMENTS [None]
  - HAEMORRHOIDS [None]
  - ABDOMINAL PAIN [None]
  - CONDITION AGGRAVATED [None]
  - HEPATIC PAIN [None]
